FAERS Safety Report 7120776-2 (Version None)
Quarter: 2010Q4

REPORT INFORMATION
  Report Type: 
  Country: None (occurrence: None)
  Receive Date: 20101124
  Receipt Date: 20101119
  Transmission Date: 20110411
  Serious: Yes (Other)
  Sender: FDA-Public Use
  Company Number: US-BAYER-201041625NA

PATIENT
  Age: 65 Year
  Sex: Male

DRUGS (13)
  1. LEUKINE [Suspect]
     Indication: COLONY STIMULATING FACTOR PROPHYLAXIS
     Route: 058
     Dates: start: 20101114
  2. BICARB [Concomitant]
     Route: 042
  3. HEPARIN [Concomitant]
     Route: 058
  4. FOLIC ACID [Concomitant]
  5. OMEPRAZOLE [Concomitant]
  6. OXYBUTIN [Concomitant]
  7. SIMVASTATIN [Concomitant]
  8. TAMILOSIN [Concomitant]
  9. ALLOPURINOL [Concomitant]
  10. SENNA [Concomitant]
  11. MIRALAX [Concomitant]
  12. LISINOPRIL [Concomitant]
  13. AMLODIPINE [Concomitant]

REACTIONS (3)
  - CHEST DISCOMFORT [None]
  - DIZZINESS [None]
  - LOSS OF CONSCIOUSNESS [None]
